FAERS Safety Report 12961024 (Version 2)
Quarter: 2016Q4

REPORT INFORMATION
  Report Type: Report from Study
  Country: AE (occurrence: AE)
  Receive Date: 20161121
  Receipt Date: 20161214
  Transmission Date: 20170207
  Serious: Yes (Hospitalization)
  Sender: FDA-Public Use
  Company Number: PHHY2016AE159303

PATIENT
  Age: 30 Year
  Sex: Female

DRUGS (1)
  1. GILENYA [Suspect]
     Active Substance: FINGOLIMOD HYDROCHLORIDE
     Indication: MULTIPLE SCLEROSIS
     Dosage: 0.5 MG, UNK
     Route: 048
     Dates: start: 201306

REACTIONS (3)
  - Hypoaesthesia [Recovering/Resolving]
  - Dysstasia [Recovering/Resolving]
  - Abasia [Recovering/Resolving]

NARRATIVE: CASE EVENT DATE: 20161110
